FAERS Safety Report 8597350-4 (Version None)
Quarter: 2012Q3

REPORT INFORMATION
  Report Type: 
  Country: None (occurrence: None)
  Receive Date: 20120816
  Receipt Date: 20120809
  Transmission Date: 20120928
  Serious: No
  Sender: FDA-Public Use
  Company Number: US-PFIZER INC-2012197321

PATIENT
  Age: 46 Year
  Sex: Female

DRUGS (2)
  1. CIPRO [Suspect]
     Dosage: UNK
  2. VIBRAMYCIN [Suspect]
     Dosage: UNK

REACTIONS (6)
  - URTICARIA [None]
  - DIARRHOEA [None]
  - RASH [None]
  - NAUSEA [None]
  - VOMITING [None]
  - DRUG HYPERSENSITIVITY [None]
